FAERS Safety Report 4425031-7 (Version None)
Quarter: 2004Q3

REPORT INFORMATION
  Report Type: 
  Country: None (occurrence: None)
  Receive Date: 20040813
  Receipt Date: 20040610
  Transmission Date: 20050211
  Serious: Yes (Hospitalization)
  Sender: FDA-Public Use
  Company Number: 200414489US

PATIENT
  Sex: Male
  Weight: 103.1 kg

DRUGS (10)
  1. INSULIN GLARGINE [Suspect]
     Dosage: DOSE UNIT: UNITS
     Route: 058
     Dates: start: 20020926
  2. GLIMEPIRIDE [Suspect]
     Route: 048
     Dates: start: 20020926
  3. ROSIGLITAZONE MALEATE [Suspect]
     Route: 048
     Dates: start: 20020926
  4. NOVOLOG [Suspect]
     Dosage: DOSE UNIT: UNITS
     Route: 058
     Dates: start: 20040124
  5. HYDROCHLOROTHIAZIDE [Concomitant]
     Route: 048
  6. CLOPIDOGREL [Concomitant]
     Route: 048
  7. CANDESARTAN [Concomitant]
     Route: 048
  8. SIMVASTATIN [Concomitant]
     Route: 048
  9. NIASPAN [Concomitant]
     Route: 048
  10. TERAZOSIN HCL [Concomitant]
     Route: 048

REACTIONS (7)
  - CAROTID ARTERY OCCLUSION [None]
  - CAROTID ARTERY STENOSIS [None]
  - CEREBROVASCULAR ACCIDENT [None]
  - COMA [None]
  - DEPRESSED LEVEL OF CONSCIOUSNESS [None]
  - HYPOGLYCAEMIA [None]
  - MOANING [None]
